FAERS Safety Report 24667187 (Version 2)
Quarter: 2024Q4

REPORT INFORMATION
  Report Type: Spontaneous
  Country: IT (occurrence: IT)
  Receive Date: 20241126
  Receipt Date: 20241205
  Transmission Date: 20250115
  Serious: Yes (Other)
  Sender: PERRIGO
  Company Number: IT-PERRIGO-24IT010788

PATIENT
  Age: 27 Year
  Sex: Male

DRUGS (2)
  1. IBUPROFEN [Suspect]
     Active Substance: IBUPROFEN
     Indication: Back pain
     Dosage: 1600 MG, SINGLE (TWO SLOW RELEASE IBUPROFEN 800 MG TABLETS)
     Route: 048
     Dates: start: 202312, end: 202312
  2. IBUPROFEN [Suspect]
     Active Substance: IBUPROFEN
     Dosage: 800 MG, SINGLE
     Route: 048
     Dates: start: 202312, end: 202312

REACTIONS (3)
  - Neurotoxicity [Recovered/Resolved]
  - Diplopia [Recovered/Resolved]
  - Dizziness [Recovered/Resolved]

NARRATIVE: CASE EVENT DATE: 20231201
